FAERS Safety Report 14712290 (Version 2)
Quarter: 2018Q3

REPORT INFORMATION
  Report Type: Report from Study
  Country: None (occurrence: US)
  Receive Date: 20180404
  Receipt Date: 20180703
  Transmission Date: 20181010
  Serious: Yes (Other)
  Sender: FDA-Public Use
  Company Number: US-ABBVIE-18K-163-2308134-00

PATIENT
  Age: 58 Year
  Sex: Female

DRUGS (4)
  1. HUMIRA [Suspect]
     Active Substance: ADALIMUMAB
     Route: 058
     Dates: start: 20171011
  2. HUMIRA [Suspect]
     Active Substance: ADALIMUMAB
     Indication: COLITIS ULCERATIVE
     Dosage: DAY 1 IN HOSPITAL
     Route: 058
     Dates: start: 20170921, end: 20170921
  3. HUMIRA [Suspect]
     Active Substance: ADALIMUMAB
     Dosage: DAY 23
     Route: 058
     Dates: start: 20171013, end: 20171013
  4. HUMIRA [Suspect]
     Active Substance: ADALIMUMAB
     Dosage: DAY 9 IN MDO
     Route: 058
     Dates: start: 20170929, end: 20170929

REACTIONS (7)
  - Feeling hot [Unknown]
  - Injection site erythema [Recovered/Resolved]
  - Loss of consciousness [Recovered/Resolved]
  - Hypotension [Unknown]
  - Musculoskeletal discomfort [Unknown]
  - Arthralgia [Unknown]
  - Injection site pruritus [Recovered/Resolved]

NARRATIVE: CASE EVENT DATE: 2018
